FAERS Safety Report 24837492 (Version 1)
Quarter: 2025Q1

REPORT INFORMATION
  Report Type: Spontaneous
  Country: CA (occurrence: CA)
  Receive Date: 20250113
  Receipt Date: 20250113
  Transmission Date: 20250409
  Serious: Yes (Hospitalization, Other)
  Sender: PFIZER
  Company Number: CA-PFIZER INC-202500004706

PATIENT
  Age: 74 Year
  Sex: Female
  Weight: 53 kg

DRUGS (2)
  1. RUXIENCE [Suspect]
     Active Substance: RITUXIMAB-PVVR
     Indication: Non-Hodgkin^s lymphoma
     Route: 042
  2. BENDAMUSTINE HYDROCHLORIDE [Suspect]
     Active Substance: BENDAMUSTINE HYDROCHLORIDE
     Indication: Non-Hodgkin^s lymphoma
     Route: 042

REACTIONS (3)
  - Anal abscess [Recovered/Resolved]
  - Febrile neutropenia [Recovered/Resolved]
  - Off label use [Unknown]
